FAERS Safety Report 8904642 (Version 5)
Quarter: 2013Q1

REPORT INFORMATION
  Report Type: Spontaneous
  Country: US (occurrence: US)
  Receive Date: 20121113
  Receipt Date: 20130114
  Transmission Date: 20140127
  Serious: No
  Sender: FDA-Public Use
  Company Number: US-009507513-1211USA002204

PATIENT
  Sex: Female
  Weight: 68.27 kg

DRUGS (1)
  1. NEXPLANON [Suspect]
     Indication: CONTRACEPTION
     Dosage: 68 MG, PER 3 YEAR IMPLANT
     Route: 059
     Dates: start: 20120831

REACTIONS (2)
  - Device breakage [Unknown]
  - No adverse event [Unknown]
